FAERS Safety Report 6884634-0 (Version None)
Quarter: 2010Q3

REPORT INFORMATION
  Report Type: 
  Country: None (occurrence: None)
  Receive Date: 20100729
  Receipt Date: 20070719
  Transmission Date: 20110219
  Serious: No
  Sender: FDA-Public Use
  Company Number: US-PFIZER INC-2007060307

PATIENT
  Sex: Female
  Weight: 61.23 kg

DRUGS (4)
  1. CELEBREX [Suspect]
     Dates: start: 20070101, end: 20070101
  2. LIPITOR [Concomitant]
  3. ZOLOFT [Concomitant]
  4. PREMARIN [Concomitant]

REACTIONS (2)
  - PRURITUS GENERALISED [None]
  - URTICARIA [None]
